FAERS Safety Report 5431960-8 (Version None)
Quarter: 2007Q3

REPORT INFORMATION
  Report Type: 
  Country: None (occurrence: None)
  Receive Date: 20070731
  Receipt Date: 20070626
  Transmission Date: 20080115
  Serious: No
  Sender: FDA-Public Use
  Company Number: US200705001432

PATIENT
  Age: 63 Year
  Sex: Female

DRUGS (7)
  1. BYETTA [Suspect]
     Indication: TYPE 2 DIABETES MELLITUS
     Dosage: 5 UG, 2/D ; 10 UG, S/D, SUBCUTANEOUS ; 5 UG, 2/D, SUBCUTANEOUS
     Route: 058
  2. BYETTA [Suspect]
     Indication: TYPE 2 DIABETES MELLITUS
     Dosage: 5 UG, 2/D ; 10 UG, S/D, SUBCUTANEOUS ; 5 UG, 2/D, SUBCUTANEOUS
     Route: 058
     Dates: start: 20050101
  3. EXENATIDE 5MCG PEN, DISPOSABLE DEVCIE (EXENATIDE PEN (5MCG)) PEN,DISPO [Concomitant]
  4. HUMULIN 30/70 (INSULIN HUMAN INJECTION, ISOPHANE) PEN,DISPOSABLE [Concomitant]
  5. ACTOS [Concomitant]
  6. METOCLOPRAMIDE (METOCLOPRAMIDE) [Concomitant]
  7. GLUCOPHAGE [Concomitant]

REACTIONS (5)
  - ARTHRITIS [None]
  - BLOOD GLUCOSE INCREASED [None]
  - NAUSEA [None]
  - RENAL IMPAIRMENT [None]
  - VOMITING [None]
